FAERS Safety Report 11465605 (Version 1)
Quarter: 2015Q3

REPORT INFORMATION
  Report Type: Spontaneous
  Country: DE (occurrence: DE)
  Receive Date: 20150907
  Receipt Date: 20150907
  Transmission Date: 20151125
  Serious: Yes (Other)
  Sender: FDA-Public Use
  Company Number: DE-SUN PHARMACEUTICAL INDUSTRIES LTD-2015RR-102562

PATIENT

DRUGS (1)
  1. CIPROFLOXACIN. [Suspect]
     Active Substance: CIPROFLOXACIN
     Indication: EPIDIDYMITIS
     Dosage: 1000 MG, UNK
     Route: 048
     Dates: start: 20140718

REACTIONS (4)
  - Headache [Unknown]
  - Hypertension [Unknown]
  - Bradycardia [Unknown]
  - Tinnitus [Unknown]

NARRATIVE: CASE EVENT DATE: 20150728
